FAERS Safety Report 22622349 (Version 1)
Quarter: 2023Q2

REPORT INFORMATION
  Report Type: Other
  Country: AU (occurrence: AU)
  Receive Date: 20230620
  Receipt Date: 20230620
  Transmission Date: 20230721
  Serious: Yes (Other)
  Sender: FDA-Public Use
  Company Number: AU-CELLTRION INC.-2023AU012222

PATIENT

DRUGS (1)
  1. ADALIMUMAB [Suspect]
     Active Substance: ADALIMUMAB
     Indication: Product used for unknown indication
     Dosage: UNK

REACTIONS (6)
  - Hepatitis cholestatic [Unknown]
  - Genital erosion [Unknown]
  - Stomatitis [Unknown]
  - Conjunctivitis [Unknown]
  - Drug effective for unapproved indication [Unknown]
  - Off label use [Unknown]
